FAERS Safety Report 9471266 (Version 6)
Quarter: 2014Q2

REPORT INFORMATION
  Report Type: Spontaneous
  Country: US (occurrence: US)
  Receive Date: 20130822
  Receipt Date: 20140430
  Transmission Date: 20141212
  Serious: Yes (Hospitalization, Other)
  Sender: FDA-Public Use
  Company Number: US-UCBSA-095485

PATIENT
  Age: 52 Year
  Sex: Male
  Weight: 91 kg

DRUGS (11)
  1. CIMZIA [Suspect]
     Indication: CONSTIPATION
     Dosage: SOLUTION FOR INJECTION IN PREFILLED SYRINGE, EXPIRY DATE: ??/DEC/2015
     Route: 058
     Dates: start: 20100323, end: 2010
  2. CIMZIA [Suspect]
     Indication: CROHN^S DISEASE
     Dosage: SOLUTION FOR INJECTION IN PREFILLED SYRINGE, EXPIRY DATE: ??/DEC/2015
     Route: 058
     Dates: start: 20100323, end: 2010
  3. CIMZIA [Suspect]
     Indication: CONSTIPATION
     Route: 058
     Dates: start: 20100723
  4. CIMZIA [Suspect]
     Indication: CROHN^S DISEASE
     Route: 058
     Dates: start: 20100723
  5. KEPPRA [Suspect]
     Indication: EPILEPSY
     Dosage: 750 3 TABS BID
  6. KEPPRA [Suspect]
     Indication: EPILEPSY
     Dosage: 1 TABLET
  7. COUMADIN [Concomitant]
     Indication: ANTICOAGULANT THERAPY
  8. DOXYCILLINE [Concomitant]
     Dates: start: 20130730, end: 20130808
  9. TEGRETOL [Concomitant]
     Dosage: 400 MG ,2TABS
  10. VIT B [Concomitant]
     Dosage: 500 UNITS DAILY
  11. PANTOPRAZOLE [Concomitant]
     Dosage: QHS

REACTIONS (8)
  - Generalised tonic-clonic seizure [Recovered/Resolved]
  - Bacterial infection [Recovered/Resolved with Sequelae]
  - Purpura [Unknown]
  - Chest pain [Recovered/Resolved]
  - Thrombosis [Recovered/Resolved]
  - Pain [Recovered/Resolved]
  - Sweat gland disorder [Not Recovered/Not Resolved]
  - Overdose [Unknown]
